FAERS Safety Report 6695456-8 (Version None)
Quarter: 2010Q2

REPORT INFORMATION
  Report Type: 
  Country: None (occurrence: None)
  Receive Date: 20100422
  Receipt Date: 20100422
  Transmission Date: 20101027
  Serious: Yes (Other)
  Sender: FDA-Public Use
  Company Number: None

PATIENT
  Age: 76 Year
  Sex: Male
  Weight: 61.2356 kg

DRUGS (1)
  1. MULTAQ [Suspect]
     Indication: ATRIAL FIBRILLATION
     Dosage: 1 TABLET/DAY ONCE A DAY ORAL
     Route: 048
     Dates: start: 20100218, end: 20100308

REACTIONS (1)
  - RASH GENERALISED [None]
